FAERS Safety Report 8389881-7 (Version None)
Quarter: 2012Q2

REPORT INFORMATION
  Report Type: 
  Country: None (occurrence: None)
  Receive Date: 20120529
  Receipt Date: 20120509
  Transmission Date: 20120825
  Serious: No
  Sender: FDA-Public Use
  Company Number: FR-JNJFOC-20120517875

PATIENT
  Age: 45 Year
  Sex: Female

DRUGS (2)
  1. DURAGESIC-100 [Suspect]
     Indication: SCIATICA
     Route: 062
  2. TRAMADOL HCL [Concomitant]
     Indication: SCIATICA
     Route: 048

REACTIONS (1)
  - EXPIRED DRUG ADMINISTERED [None]
